FAERS Safety Report 10101751 (Version 1)
Quarter: 2014Q2

REPORT INFORMATION
  Report Type: Spontaneous
  Country: US (occurrence: US)
  Receive Date: 20140424
  Receipt Date: 20140424
  Transmission Date: 20141212
  Serious: Yes (Hospitalization, Disabling, Other)
  Sender: FDA-Public Use
  Company Number: US-BAYER-2014-058625

PATIENT
  Sex: Male

DRUGS (10)
  1. CIPRO [Suspect]
     Indication: URINARY TRACT INFECTION
     Dosage: UNK
  2. CIPRO [Suspect]
     Indication: URINARY TRACT INFECTION
     Dosage: UNK
     Route: 042
     Dates: start: 20031017
  3. CIPRO [Suspect]
     Indication: URINARY TRACT INFECTION
     Dosage: UNK
     Route: 042
     Dates: start: 20040825
  4. CIPRO [Suspect]
     Indication: URINARY TRACT INFECTION
     Dosage: UNK
     Route: 042
     Dates: start: 20050506
  5. CIPRO [Suspect]
     Indication: URINARY TRACT INFECTION
     Dosage: UNK
     Route: 042
     Dates: start: 20060720
  6. CIPRO [Suspect]
     Indication: URINARY TRACT INFECTION
     Dosage: UNK
     Route: 042
     Dates: start: 20070103
  7. CIPRO [Suspect]
     Indication: URINARY TRACT INFECTION
     Dosage: UNK
     Route: 042
     Dates: start: 20071013
  8. CIPRO [Suspect]
     Indication: URINARY TRACT INFECTION
     Dosage: UNK
     Route: 042
     Dates: start: 20080916
  9. CIPRO [Suspect]
     Indication: URINARY TRACT INFECTION
     Dosage: UNK
     Route: 042
     Dates: start: 20100910
  10. CIPRO [Suspect]
     Indication: URINARY TRACT INFECTION
     Dosage: UNK
     Route: 042

REACTIONS (28)
  - Neuropathy peripheral [None]
  - Cardiac failure congestive [None]
  - Dyspnoea [None]
  - Oxygen saturation decreased [None]
  - Blindness unilateral [None]
  - Axonal neuropathy [None]
  - Visual field defect [None]
  - Suicidal ideation [None]
  - Depression [None]
  - Pain [None]
  - Sensory disturbance [None]
  - Gait disturbance [None]
  - Fatigue [None]
  - Activities of daily living impaired [None]
  - Panic reaction [None]
  - Bradyphrenia [None]
  - Fear [None]
  - Hearing impaired [None]
  - Tendonitis [None]
  - Musculoskeletal pain [None]
  - Toxicity to various agents [None]
  - Foot deformity [None]
  - Visual impairment [None]
  - Hypoaesthesia [None]
  - Muscular weakness [None]
  - Burning sensation [None]
  - Genital burning sensation [None]
  - Paraesthesia [None]
